FAERS Safety Report 15646694 (Version 1)
Quarter: 2018Q4

REPORT INFORMATION
  Report Type: Spontaneous
  Country: RO (occurrence: RO)
  Receive Date: 20181122
  Receipt Date: 20181122
  Transmission Date: 20190205
  Serious: Yes (Life-Threatening, Hospitalization)
  Sender: FDA-Public Use
  Company Number: RO-TEVA-2018-RO-977329

PATIENT
  Age: 36 Year
  Sex: Female

DRUGS (2)
  1. COPAXONE [Suspect]
     Active Substance: GLATIRAMER ACETATE
     Indication: MULTIPLE SCLEROSIS
     Dosage: 3 SUBCUTANEOUS ADMINISTRATION/WEEK-MONDAY, WEDNESDAY AND FRIDAY
     Route: 058
     Dates: start: 2016
  2. RIVOTRIL [Concomitant]
     Active Substance: CLONAZEPAM
     Indication: BRUXISM
     Dosage: 1 TABLET/DAY IN THE EVENING, ONLY IF IS NEEDED
     Route: 048
     Dates: start: 2016

REACTIONS (1)
  - Anaphylactic reaction [Recovered/Resolved]

NARRATIVE: CASE EVENT DATE: 20181010
